FAERS Safety Report 20228345 (Version 2)
Quarter: 2022Q1

REPORT INFORMATION
  Report Type: Spontaneous
  Country: US (occurrence: US)
  Receive Date: 20211224
  Receipt Date: 20220125
  Transmission Date: 20220423
  Serious: No
  Sender: FDA-Public Use
  Company Number: US-ORGANON-O2112USA001599

PATIENT
  Sex: Female
  Weight: 10.431 kg

DRUGS (2)
  1. SINGULAIR [Suspect]
     Active Substance: MONTELUKAST SODIUM
     Indication: Asthma
     Dosage: 5 MILLIGRAM, ONCE DAILY, AT BEDTIME
     Route: 048
  2. SINGULAIR [Suspect]
     Active Substance: MONTELUKAST SODIUM
     Indication: Rhinitis allergic

REACTIONS (7)
  - Mental disorder [Unknown]
  - Behaviour disorder [Unknown]
  - Pain [Unknown]
  - Emotional distress [Unknown]
  - Nocturnal fear [Recovered/Resolved]
  - Anxiety [Unknown]
  - Aggression [Unknown]

NARRATIVE: CASE EVENT DATE: 20191101
